FAERS Safety Report 16660027 (Version 1)
Quarter: 2019Q3

REPORT INFORMATION
  Report Type: Spontaneous
  Country: US (occurrence: US)
  Receive Date: 20190618
  Receipt Date: 20190618
  Transmission Date: 20191004
  Serious: Yes (Hospitalization)
  Sender: FDA-Public Use
  Company Number: None

PATIENT
  Age: 54 Year
  Sex: Female
  Weight: 91 kg

DRUGS (3)
  1. CYCLOPHOSPHAMIDE. [Suspect]
     Active Substance: CYCLOPHOSPHAMIDE
     Dates: end: 20190402
  2. DOXORUBICIN HYDROCHLORIDE. [Concomitant]
     Active Substance: DOXORUBICIN HYDROCHLORIDE
     Dates: end: 20190402
  3. TAXOL [Suspect]
     Active Substance: PACLITAXEL
     Dates: end: 20190604

REACTIONS (3)
  - Postoperative wound infection [None]
  - Post procedural inflammation [None]
  - Wound infection staphylococcal [None]

NARRATIVE: CASE EVENT DATE: 20190606
